FAERS Safety Report 9543015 (Version 1)
Quarter: 2013Q2

REPORT INFORMATION
  Report Type: Spontaneous
  Country: US (occurrence: None)
  Receive Date: 20130524
  Receipt Date: 20130524
  Transmission Date: 20140414
  Serious: Yes (Other)
  Sender: FDA-Public Use
  Company Number: PHEH2012US025624

PATIENT
  Sex: Female
  Weight: 77.1 kg

DRUGS (1)
  1. GILENYA [Suspect]
     Indication: MULTIPLE SCLEROSIS
     Route: 048
     Dates: start: 20120824, end: 20121224

REACTIONS (3)
  - Fatigue [None]
  - White blood cell count decreased [None]
  - Hepatic enzyme abnormal [None]
